FAERS Safety Report 17962767 (Version 1)
Quarter: 2020Q2

REPORT INFORMATION
  Report Type: Spontaneous
  Country: US (occurrence: US)
  Receive Date: 20200630
  Receipt Date: 20200630
  Transmission Date: 20200714
  Serious: Yes (Other)
  Sender: FDA-Public Use
  Company Number: US-TORRENT-00010287

PATIENT
  Sex: Male
  Weight: 68 kg

DRUGS (2)
  1. CITALOPRAM HYDROBROMIDE TABLETS [Suspect]
     Active Substance: CITALOPRAM HYDROBROMIDE
     Indication: DEPRESSION
     Dosage: FROM LAST 15 YEARS
     Dates: start: 2005
  2. ATIVAN [Concomitant]
     Active Substance: LORAZEPAM
     Indication: ANXIETY
     Dosage: UNKNOWN

REACTIONS (9)
  - General physical health deterioration [Unknown]
  - Sexual dysfunction [Unknown]
  - Ejaculation failure [Unknown]
  - Feeding disorder [Unknown]
  - Gastrooesophageal reflux disease [Unknown]
  - Regurgitation [Unknown]
  - Anorgasmia [Unknown]
  - Gastrointestinal injury [Unknown]
  - Constipation [Unknown]
